FAERS Safety Report 14071343 (Version 1)
Quarter: 2017Q4

REPORT INFORMATION
  Report Type: Report from Study
  Country: FR (occurrence: FR)
  Receive Date: 20171011
  Receipt Date: 20171011
  Transmission Date: 20180321
  Serious: Yes (Death, Other)
  Sender: FDA-Public Use
  Company Number: FR-ROCHE-1505078

PATIENT

DRUGS (5)
  1. ATG-FRESENIUS [Suspect]
     Active Substance: LAPINE T-LYMPHOCYTE IMMUNE GLOBULIN
     Indication: PROPHYLAXIS AGAINST TRANSPLANT REJECTION
     Dosage: ADMINISTERED IMMEDIATELY.
     Route: 065
  2. CYCLOSPORINE. [Suspect]
     Active Substance: CYCLOSPORINE
     Indication: PROPHYLAXIS AGAINST TRANSPLANT REJECTION
     Route: 065
  3. METHYLPREDNISOLONE. [Suspect]
     Active Substance: METHYLPREDNISOLONE
     Indication: PROPHYLAXIS AGAINST TRANSPLANT REJECTION
     Route: 065
  4. MYCOPHENOLATE MOFETIL. [Suspect]
     Active Substance: MYCOPHENOLATE MOFETIL
     Indication: PROPHYLAXIS AGAINST TRANSPLANT REJECTION
     Dosage: STARTED ON THE DAY OF SURGERY
     Route: 048
  5. ATG-FRESENIUS [Suspect]
     Active Substance: LAPINE T-LYMPHOCYTE IMMUNE GLOBULIN
     Dosage: ON ALTERNATE DAYS AFTER SURGERY WITH A TOTAL OF FIVE ADMINISTRATIONS
     Route: 065

REACTIONS (10)
  - Serum sickness [Unknown]
  - Polyomavirus-associated nephropathy [Unknown]
  - Neoplasm skin [Unknown]
  - Neoplasm [Unknown]
  - Breast cancer [Unknown]
  - Post transplant lymphoproliferative disorder [Unknown]
  - Sepsis [Fatal]
  - Epstein-Barr virus associated lymphoproliferative disorder [Unknown]
  - Encephalitis [Fatal]
  - Neoplasm malignant [Fatal]
